FAERS Safety Report 20931392 (Version 1)
Quarter: 2022Q2

REPORT INFORMATION
  Report Type: Spontaneous
  Country: US (occurrence: US)
  Receive Date: 20220608
  Receipt Date: 20220608
  Transmission Date: 20220721
  Serious: No
  Sender: FDA-Public Use
  Company Number: US-BAYER-2022A078752

PATIENT

DRUGS (4)
  1. CLARITIN [Suspect]
     Active Substance: LORATADINE
     Indication: Multiple allergies
  2. CLARITIN [Suspect]
     Active Substance: LORATADINE
     Indication: Sneezing
  3. CLARITIN [Suspect]
     Active Substance: LORATADINE
     Indication: Rhinorrhoea
  4. CLARITIN [Suspect]
     Active Substance: LORATADINE
     Indication: Rhinitis

REACTIONS (1)
  - Drug effective for unapproved indication [Unknown]
